FAERS Safety Report 15003598 (Version 1)
Quarter: 2018Q2

REPORT INFORMATION
  Report Type: Spontaneous
  Country: US (occurrence: US)
  Receive Date: 20180613
  Receipt Date: 20180613
  Transmission Date: 20180711
  Serious: No
  Sender: FDA-Public Use
  Company Number: US-B.I. PHARMACEUTICALS,INC./RIDGEFIELD-2018-BI-029726

PATIENT
  Age: 61 Year
  Sex: Male

DRUGS (7)
  1. HUMULIN NOS [Concomitant]
     Active Substance: INSULIN HUMAN
     Indication: DIABETES MELLITUS
     Dosage: 1-2 TIMES DAILY PER SLIDIING SCALE;  FORMULATION: SUBCUTANEOUS;
     Route: 058
  2. COMBIVENT [Suspect]
     Active Substance: ALBUTEROL SULFATE\IPRATROPIUM BROMIDE
     Indication: PULMONARY MASS
     Dosage: FORM STRENGTH: 18 MCG / 103 MCG ACTION(S) TAKEN WITH PRODUCT: NOT REPORTED?INHALATION AEROSOL
     Route: 055
  3. ASPIRIN                            /00002701/ [Concomitant]
     Active Substance: ASPIRIN
     Indication: ISCHAEMIC HEART DISEASE PROPHYLAXIS
     Dosage: 1 TABLET DAILY;  FORM STRENGTH: 81MG; FORMULATION: TABLET
     Route: 048
  4. BYETTA [Concomitant]
     Active Substance: EXENATIDE
     Indication: DIABETES MELLITUS
     Dosage: 10 UNITS TWICE DAILY;  FORM STRENGTH: 10 UNITS; FORMULATION: SUBCUTANEOUS
     Route: 058
  5. TRAZODONE [Concomitant]
     Active Substance: TRAZODONE HYDROCHLORIDE
     Indication: INSOMNIA
     Dosage: 1 TABLET DAILY AT BEDTIME;  FORM STRENGTH: 25MG; FORMULATION: TABLET
     Route: 048
     Dates: start: 2015
  6. FISH OIL [Concomitant]
     Active Substance: FISH OIL
     Indication: SUPPLEMENTATION THERAPY
     Route: 065
  7. APPLE CIDER VINEGAR [Concomitant]
     Active Substance: APPLE CIDER VINEGAR
     Indication: PRODUCT USED FOR UNKNOWN INDICATION
     Route: 065

REACTIONS (3)
  - Dyspnoea [Not Recovered/Not Resolved]
  - Off label use [Unknown]
  - Product quality issue [Unknown]

NARRATIVE: CASE EVENT DATE: 201805
